FAERS Safety Report 8219533-5 (Version None)
Quarter: 2012Q1

REPORT INFORMATION
  Report Type: 
  Country: None (occurrence: None)
  Receive Date: 20120319
  Receipt Date: 20120315
  Transmission Date: 20120608
  Serious: Yes (Death)
  Sender: FDA-Public Use
  Company Number: PHHY2012DE023456

PATIENT

DRUGS (2)
  1. CABAZITAXEL [Suspect]
     Indication: PROSTATE CANCER METASTATIC
  2. PREDNISONE [Suspect]
     Indication: PROSTATE CANCER METASTATIC

REACTIONS (1)
  - BONE MARROW FAILURE [None]
